FAERS Safety Report 7082882-0 (Version None)
Quarter: 2010Q4

REPORT INFORMATION
  Report Type: 
  Country: None (occurrence: None)
  Receive Date: 20101104
  Receipt Date: 20101021
  Transmission Date: 20110411
  Serious: Yes (Other)
  Sender: FDA-Public Use
  Company Number: PHHY2010JP61178

PATIENT
  Age: 62 Year
  Sex: Male

DRUGS (6)
  1. ZOMETA [Suspect]
     Indication: MULTIPLE MYELOMA
     Dosage: UNK
     Route: 041
     Dates: start: 20061201, end: 20080401
  2. AREDIA [Suspect]
     Indication: MULTIPLE MYELOMA
     Dosage: UNK
     Route: 041
     Dates: start: 20041201, end: 20060401
  3. RITUXIMAB [Concomitant]
  4. OXALIPLATIN [Concomitant]
  5. CYTARABINE [Concomitant]
  6. DEXAMETHASONE [Concomitant]

REACTIONS (11)
  - BONE DISORDER [None]
  - GINGIVAL ERYTHEMA [None]
  - GINGIVAL SWELLING [None]
  - JAW OPERATION [None]
  - OPEN WOUND [None]
  - OSTEONECROSIS OF JAW [None]
  - PAIN IN JAW [None]
  - PRIMARY SEQUESTRUM [None]
  - SEQUESTRECTOMY [None]
  - TOOTH EXTRACTION [None]
  - WOUND DRAINAGE [None]
